FAERS Safety Report 13627181 (Version 1)
Quarter: 2017Q2

REPORT INFORMATION
  Report Type: Report from Study
  Country: US (occurrence: US)
  Receive Date: 20170607
  Receipt Date: 20170607
  Transmission Date: 20170830
  Serious: Yes (Hospitalization, Other)
  Sender: FDA-Public Use
  Company Number: US-TEVA-775807USA

PATIENT
  Age: 10 Year
  Sex: Male
  Weight: 33.7 kg

DRUGS (3)
  1. CYTARABINE HYDROCHLORIDE [Suspect]
     Active Substance: CYTARABINE HYDROCHLORIDE
     Route: 065
     Dates: start: 20170202
  2. INCB018424 (INCB018424) [Suspect]
     Active Substance: RUXOLITINIB
     Indication: B PRECURSOR TYPE ACUTE LEUKAEMIA
     Dosage: 20 MG/M2
     Route: 048
     Dates: start: 20170202
  3. VINCRISTINE [Suspect]
     Active Substance: VINCRISTINE
     Route: 065
     Dates: start: 20170202

REACTIONS (2)
  - Febrile neutropenia [Not Recovered/Not Resolved]
  - Neutropenic colitis [Not Recovered/Not Resolved]

NARRATIVE: CASE EVENT DATE: 20170411
